FAERS Safety Report 7093176-1 (Version None)
Quarter: 2010Q4

REPORT INFORMATION
  Report Type: 
  Country: None (occurrence: None)
  Receive Date: 20101110
  Receipt Date: 20080814
  Transmission Date: 20110411
  Serious: No
  Sender: FDA-Public Use
  Company Number: US-KINGPHARMUSA00001-K200800965

PATIENT
  Sex: Female
  Weight: 106.58 kg

DRUGS (3)
  1. LEVOXYL [Suspect]
     Indication: HYPOTHYROIDISM
     Dosage: 200 MCG, QD
     Route: 048
     Dates: start: 20040101
  2. VITAMIN C                          /00008001/ [Concomitant]
  3. IRON [Concomitant]

REACTIONS (3)
  - DYSPHAGIA [None]
  - GASTROOESOPHAGEAL REFLUX DISEASE [None]
  - HIATUS HERNIA [None]
